FAERS Safety Report 25284285 (Version 6)
Quarter: 2025Q4

REPORT INFORMATION
  Report Type: Report from Study
  Country: US (occurrence: US)
  Receive Date: 20250508
  Receipt Date: 20251208
  Transmission Date: 20260118
  Serious: Yes (Other)
  Sender: ABBVIE
  Company Number: US-ABBVIE-6270860

PATIENT
  Sex: Male
  Weight: 7 kg

DRUGS (2)
  1. UBROGEPANT [Suspect]
     Active Substance: UBROGEPANT
     Indication: Maternal exposure timing unspecified
     Route: 064
  2. AUVI-Q [Concomitant]
     Active Substance: EPINEPHRINE
     Indication: Product used for unknown indication
     Dosage: TIME INTERVAL: AS NECESSARY: 0.1 MG/0.1ML AUTO-INJECTION?AS NEEDED?NOT PERMANENTLY DISCONTINUED
     Dates: start: 20250414

REACTIONS (2)
  - Eczema [Not Recovered/Not Resolved]
  - Foetal exposure during pregnancy [Unknown]

NARRATIVE: CASE EVENT DATE: 20250414
